FAERS Safety Report 25640308 (Version 1)
Quarter: 2025Q3

REPORT INFORMATION
  Report Type: Spontaneous
  Country: US (occurrence: US)
  Receive Date: 20250804
  Receipt Date: 20250804
  Transmission Date: 20251020
  Serious: Yes (Hospitalization, Other)
  Sender: DR REDDYS
  Company Number: US-DRL-USA-USA/2025/07/011550

PATIENT
  Age: 4 Year
  Sex: Female
  Weight: 12.3 kg

DRUGS (10)
  1. CYCLOPHOSPHAMIDE [Suspect]
     Active Substance: CYCLOPHOSPHAMIDE
     Indication: Bone marrow conditioning regimen
  2. POSACONAZOLE [Suspect]
     Active Substance: POSACONAZOLE
     Indication: Fungaemia
  3. BUSULFAN [Suspect]
     Active Substance: BUSULFAN
     Indication: Bone marrow conditioning regimen
  4. MICAFUNGIN [Suspect]
     Active Substance: MICAFUNGIN SODIUM
     Indication: Fungaemia
  5. FLUDARABINE [Concomitant]
     Active Substance: FLUDARABINE PHOSPHATE
     Indication: Bone marrow conditioning regimen
  6. liposomal amphotericin- b [Concomitant]
     Indication: Fungaemia
  7. LEVOFLOXACIN [Concomitant]
     Active Substance: LEVOFLOXACIN
     Indication: Bacterial infection
  8. ACYCLOVIR [Concomitant]
     Active Substance: ACYCLOVIR
     Indication: Antibiotic prophylaxis
  9. LETERMOVIR [Concomitant]
     Active Substance: LETERMOVIR
     Indication: Antibiotic prophylaxis
  10. PENTAMIDINE [Concomitant]
     Active Substance: PENTAMIDINE
     Indication: Antibiotic prophylaxis

REACTIONS (3)
  - Fungaemia [Unknown]
  - Drug ineffective [Unknown]
  - Product use in unapproved indication [Unknown]
